FAERS Safety Report 4408580-7 (Version None)
Quarter: 2004Q3

REPORT INFORMATION
  Report Type: 
  Country: None (occurrence: None)
  Receive Date: 20040723
  Receipt Date: 20040712
  Transmission Date: 20050211
  Serious: Yes (Hospitalization, Other)
  Sender: FDA-Public Use
  Company Number: AU-2004-028724

PATIENT
  Sex: Male

DRUGS (2)
  1. SOTALOL HCL [Suspect]
  2. PRAVACHOL [Concomitant]
     Indication: BLOOD CHOLESTEROL INCREASED
     Dosage: 20 MG, BED T, ORAL
     Route: 048
     Dates: start: 20030501, end: 20040622

REACTIONS (7)
  - FEELING COLD [None]
  - HYPOAESTHESIA [None]
  - MYALGIA [None]
  - PAIN [None]
  - PERIPHERAL COLDNESS [None]
  - SUICIDAL IDEATION [None]
  - UNEVALUABLE EVENT [None]
